FAERS Safety Report 17456375 (Version 3)
Quarter: 2020Q1

REPORT INFORMATION
  Report Type: Report from Study
  Country: ES (occurrence: ES)
  Receive Date: 20200225
  Receipt Date: 20200320
  Transmission Date: 20200409
  Serious: Yes (Hospitalization)
  Sender: FDA-Public Use
  Company Number: ES-GLAXOSMITHKLINE-ES2020GSK027795

PATIENT
  Age: 80 Year
  Sex: Male

DRUGS (15)
  1. OMEPRAZOLE. [Concomitant]
     Active Substance: OMEPRAZOLE
     Indication: GASTROINTESTINAL DISORDER PROPHYLAXIS
     Dosage: 1 DF, QD
     Route: 048
     Dates: start: 201805
  2. ESCITALOPRAM [Concomitant]
     Active Substance: ESCITALOPRAM OXALATE
     Indication: DEPRESSION
     Dosage: 10 MG, QD
     Route: 048
     Dates: start: 20191217
  3. NIRAPARIB [Suspect]
     Active Substance: NIRAPARIB
     Dosage: 200 MG
     Route: 048
     Dates: start: 20200206
  4. ATEZOLIZUMAB. [Suspect]
     Active Substance: ATEZOLIZUMAB
     Dosage: 1200 MG
     Route: 042
     Dates: start: 20200128
  5. MONTELUKAST [Concomitant]
     Active Substance: MONTELUKAST SODIUM
     Indication: ASTHMA
     Dosage: 10 MG, QD
     Route: 048
     Dates: start: 2009
  6. FERROUS SULFATE. [Concomitant]
     Active Substance: FERROUS SULFATE
     Indication: ANAEMIA
     Dosage: 80 MG, QD
     Route: 048
     Dates: start: 20191119, end: 20200207
  7. SIMBICORT [Concomitant]
     Active Substance: BUDESONIDE\FORMOTEROL FUMARATE
     Indication: ASTHMA
     Dosage: UNK, BID
     Route: 055
     Dates: start: 2009
  8. METAMIZOL [Concomitant]
     Active Substance: METAMIZOLE SODIUM
     Indication: PROCTALGIA
     Dosage: 575 MG
     Route: 048
     Dates: start: 201910
  9. MEGEFREN [Concomitant]
     Indication: DECREASED APPETITE
     Dosage: 160 MG, QD
     Route: 048
     Dates: start: 20191226
  10. ATEZOLIZUMAB. [Suspect]
     Active Substance: ATEZOLIZUMAB
     Indication: TRANSITIONAL CELL CARCINOMA
     Dosage: 1200 MG, EVERY THREE WEEKS, MOST RECENT DOSE OF ATEZOLIZUMAB (1200 MG) PRIOR TO AE ONSET:28/JAN/2020
     Route: 042
     Dates: start: 20191106
  11. NIRAPARIB [Suspect]
     Active Substance: NIRAPARIB
     Indication: TRANSITIONAL CELL CARCINOMA
     Dosage: 200 MG, QD, MOST RECENT DOSE OF NIRAPARIB (200 MG) PRIOR TO AE ONSET
     Route: 048
     Dates: start: 20191106, end: 20200206
  12. ACLIDINIUM BROMIDE. [Concomitant]
     Active Substance: ACLIDINIUM BROMIDE
     Indication: ASTHMA
     Dosage: 322, BID
     Route: 048
     Dates: start: 2009
  13. ASPIRIN. [Concomitant]
     Active Substance: ASPIRIN
     Indication: PROCTALGIA
     Dosage: 1 DF, QD
     Route: 048
     Dates: start: 201805
  14. TARDYFERON (FERROUS SULPHATE) [Concomitant]
     Indication: ANAEMIA
     Dosage: 80 MG, QD
     Route: 048
     Dates: start: 20191119
  15. METAMIZOL [Concomitant]
     Active Substance: METAMIZOLE SODIUM
     Dosage: 1 AMPULE
     Route: 042
     Dates: start: 20200207, end: 20200211

REACTIONS (1)
  - Gastroenteritis [Recovered/Resolved]

NARRATIVE: CASE EVENT DATE: 20200207
